FAERS Safety Report 7246372-4 (Version None)
Quarter: 2011Q1

REPORT INFORMATION
  Report Type: 
  Country: None (occurrence: None)
  Receive Date: 20110126
  Receipt Date: 20110120
  Transmission Date: 20110831
  Serious: Yes (Hospitalization)
  Sender: FDA-Public Use
  Company Number: CA-PFIZER INC-2011015432

PATIENT
  Sex: Male

DRUGS (1)
  1. ZARONTIN [Suspect]

REACTIONS (1)
  - VASCULAR GRAFT [None]
